FAERS Safety Report 20626349 (Version 4)
Quarter: 2022Q3

REPORT INFORMATION
  Report Type: Report from Study
  Country: MX (occurrence: MX)
  Receive Date: 20220323
  Receipt Date: 20220915
  Transmission Date: 20221027
  Serious: Yes (Hospitalization, Disabling, Other)
  Sender: FDA-Public Use
  Company Number: MX-NOVARTISPH-NVSC2022MX066110

PATIENT
  Age: 30 Year
  Sex: Female
  Weight: 60 kg

DRUGS (3)
  1. GILENYA [Suspect]
     Active Substance: FINGOLIMOD HYDROCHLORIDE
     Indication: Multiple sclerosis
     Dosage: 0.5 MG, QD
     Route: 048
  2. GILENYA [Suspect]
     Active Substance: FINGOLIMOD HYDROCHLORIDE
     Dosage: 0.5 MG, QD
     Route: 048
     Dates: start: 20220316, end: 20220820
  3. GILENYA [Suspect]
     Active Substance: FINGOLIMOD HYDROCHLORIDE
     Dosage: 0.5 MG, QD
     Route: 048
     Dates: start: 20220828

REACTIONS (10)
  - Urinary tract infection [Recovered/Resolved]
  - Seizure [Recovering/Resolving]
  - Drug ineffective [Not Recovered/Not Resolved]
  - Disorientation [Not Recovered/Not Resolved]
  - Seizure [Recovered/Resolved]
  - Feeling abnormal [Unknown]
  - White blood cell disorder [Recovered/Resolved]
  - Peripheral swelling [Unknown]
  - Anal incontinence [Recovering/Resolving]
  - Product dose omission issue [Unknown]

NARRATIVE: CASE EVENT DATE: 20220307
